FAERS Safety Report 4313607-7 (Version None)
Quarter: 2004Q1

REPORT INFORMATION
  Report Type: 
  Country: None (occurrence: None)
  Receive Date: 20040305
  Receipt Date: 20040224
  Transmission Date: 20041129
  Serious: Yes (Death)
  Sender: FDA-Public Use
  Company Number: 163-20785-03070096

PATIENT
  Age: 67 Year
  Sex: Male

DRUGS (2)
  1. THALOMID [Suspect]
     Indication: METASTATIC RENAL CELL CARCINOMA
     Dosage: 200 MG DAILY ORAL
     Route: 048
     Dates: start: 20010822
  2. DECADRON [Suspect]
     Indication: METASTATIC RENAL CELL CARCINOMA
     Dosage: 40 MG DAILY FOR 4 DAYS PER WEEK ORAL
     Route: 048
     Dates: start: 20011019

REACTIONS (1)
  - LOBAR PNEUMONIA [None]
